FAERS Safety Report 8209688-0 (Version None)
Quarter: 2012Q1

REPORT INFORMATION
  Report Type: 
  Country: None (occurrence: None)
  Receive Date: 20120314
  Receipt Date: 20120301
  Transmission Date: 20120608
  Serious: Yes (Hospitalization)
  Sender: FDA-Public Use
  Company Number: JP-VALEANT-2012VX001074

PATIENT
  Age: 27 Year
  Sex: Male

DRUGS (3)
  1. FLUOROURACIL [Suspect]
     Dosage: DOSE UNIT:600
     Route: 065
  2. TAXOTERE [Suspect]
     Dosage: DOSE UNIT:50
     Route: 065
  3. CISPLATIN [Suspect]
     Dosage: DOSE UNIT:60
     Route: 065

REACTIONS (4)
  - MOUTH ULCERATION [None]
  - PAIN [None]
  - DYSPHAGIA [None]
  - STOMATITIS [None]
